FAERS Safety Report 5151874-0 (Version None)
Quarter: 2006Q4

REPORT INFORMATION
  Report Type: 
  Country: None (occurrence: None)
  Receive Date: 20061109
  Receipt Date: 20061027
  Transmission Date: 20070319
  Serious: Yes (Hospitalization, Other)
  Sender: FDA-Public Use
  Company Number: 2006126742

PATIENT
  Age: 60 Year
  Sex: Male
  Weight: 64 kg

DRUGS (2)
  1. SUTENT [Suspect]
     Indication: METASTATIC RENAL CELL CARCINOMA
     Dosage: 50 MG (1 D), ORAL
     Route: 048
     Dates: start: 20060906, end: 20060920
  2. OMEPRAZOLE [Concomitant]

REACTIONS (17)
  - ANAEMIA [None]
  - BLOOD PRESSURE DIASTOLIC DECREASED [None]
  - BLOOD URIC ACID INCREASED [None]
  - CHILLS [None]
  - DEHYDRATION [None]
  - DIARRHOEA [None]
  - DYSARTHRIA [None]
  - FLUID RETENTION [None]
  - GENERAL PHYSICAL HEALTH DETERIORATION [None]
  - HEPATITIS [None]
  - HYPERKALAEMIA [None]
  - HYPOURICAEMIA [None]
  - INFECTION [None]
  - PYREXIA [None]
  - THROMBOCYTOPENIA [None]
  - TREMOR [None]
  - TUMOUR LYSIS SYNDROME [None]
